FAERS Safety Report 4901240-5 (Version None)
Quarter: 2006Q1

REPORT INFORMATION
  Report Type: 
  Country: None (occurrence: None)
  Receive Date: 20060202
  Receipt Date: 20060127
  Transmission Date: 20060701
  Serious: Yes (Hospitalization)
  Sender: FDA-Public Use
  Company Number: 2006BI001636

PATIENT
  Age: 49 Year
  Sex: Female

DRUGS (2)
  1. AVONEX [Suspect]
     Indication: MULTIPLE SCLEROSIS
     Dates: start: 19960501
  2. MEDICATION (NOS) FOR SHORT-TERM MEMORY LOSS [Concomitant]

REACTIONS (3)
  - AMNESIA [None]
  - OVERDOSE [None]
  - ROAD TRAFFIC ACCIDENT [None]
